FAERS Safety Report 8164275 (Version 2)
Quarter: 2014Q3

REPORT INFORMATION
  Report Type: Report from Study
  Country: US (occurrence: US)
  Receive Date: 20110930
  Receipt Date: 20140801
  Transmission Date: 20150326
  Serious: No
  Sender: FDA-Public Use
  Company Number: US-ASTRAZENECA-2010SE55414

PATIENT
  Age: 70 Year
  Sex: Female
  Weight: 68.9 kg

DRUGS (2)
  1. ARIMIDEX [Suspect]
     Active Substance: ANASTROZOLE
     Indication: BREAST CANCER
     Route: 048
     Dates: start: 200802
  2. FASLODEX [Suspect]
     Active Substance: FULVESTRANT
     Indication: NEOPLASM MALIGNANT
     Route: 030
     Dates: start: 201406

REACTIONS (5)
  - Hot flush [Unknown]
  - Lip swelling [Unknown]
  - Hair growth abnormal [Unknown]
  - Alopecia [Unknown]
  - Dysgeusia [Unknown]

NARRATIVE: CASE EVENT DATE: 20140721
